FAERS Safety Report 6524974-8 (Version None)
Quarter: 2009Q4

REPORT INFORMATION
  Report Type: 
  Country: None (occurrence: None)
  Receive Date: 20091231
  Receipt Date: 20091231
  Transmission Date: 20100525
  Serious: Yes (Life-Threatening, Hospitalization, Disabling)
  Sender: FDA-Public Use
  Company Number: None

PATIENT
  Age: 57 Year
  Sex: Male
  Weight: 71.6683 kg

DRUGS (2)
  1. HUMIRA [Suspect]
     Indication: RHEUMATOID ARTHRITIS
     Dosage: INJECTION BI-MONTHLY ORAL
     Route: 048
     Dates: start: 20051201, end: 20070205
  2. NAPROXEN [Concomitant]

REACTIONS (1)
  - NON-HODGKIN'S LYMPHOMA STAGE IV [None]
